FAERS Safety Report 6665499-9 (Version None)
Quarter: 2010Q2

REPORT INFORMATION
  Report Type: 
  Country: None (occurrence: None)
  Receive Date: 20100402
  Receipt Date: 20100324
  Transmission Date: 20101027
  Serious: Yes (Other)
  Sender: FDA-Public Use
  Company Number: US-PFIZER INC-2004119757

PATIENT
  Sex: Female
  Weight: 95.25 kg

DRUGS (14)
  1. CELEBREX [Suspect]
     Indication: ARTHRITIS
     Route: 065
     Dates: start: 20010501
  2. VISTARIL [Suspect]
     Indication: NERVOUS SYSTEM DISORDER
     Route: 065
     Dates: start: 20031101
  3. NEURONTIN [Concomitant]
  4. PRAVASTATIN SODIUM [Concomitant]
     Indication: BLOOD CHOLESTEROL
     Route: 065
  5. POTASSIUM CHLORIDE [Concomitant]
     Route: 065
  6. FEXOFENADINE HYDROCHLORIDE [Concomitant]
     Indication: SINUS DISORDER
     Route: 065
  7. ISOXSUPRINE HYDROCHLORIDE [Concomitant]
     Route: 065
  8. ALLOPURINOL [Concomitant]
     Indication: GOUT
     Route: 065
  9. CLOPIDOGREL SULFATE [Concomitant]
     Indication: ANTIPLATELET THERAPY
     Route: 065
  10. ORPHENADRINE CITRATE [Concomitant]
     Route: 065
  11. RANITIDINE HYDROCHLORIDE [Concomitant]
     Route: 065
  12. LANSOPRAZOLE [Concomitant]
     Indication: PROPHYLAXIS AGAINST GASTROINTESTINAL ULCER
     Route: 065
  13. ATENOLOL [Concomitant]
     Indication: HYPERTENSION
     Route: 065
  14. PERI-COLACE [Concomitant]
     Route: 065

REACTIONS (3)
  - BREAST CANCER [None]
  - URINARY TRACT INFECTION [None]
  - URINE ABNORMALITY [None]
